FAERS Safety Report 19106564 (Version 1)
Quarter: 2021Q2

REPORT INFORMATION
  Report Type: Spontaneous
  Country: US (occurrence: US)
  Receive Date: 20210407
  Receipt Date: 20210407
  Transmission Date: 20210717
  Serious: Yes (Hospitalization)
  Sender: FDA-Public Use
  Company Number: US-ELI_LILLY_AND_COMPANY-US202103013250

PATIENT
  Sex: Female

DRUGS (2)
  1. BAQSIMI [Suspect]
     Active Substance: GLUCAGON
     Indication: HYPOGLYCAEMIA
     Route: 065
  2. BAQSIMI [Suspect]
     Active Substance: GLUCAGON
     Indication: HYPOGLYCAEMIA
     Route: 065

REACTIONS (2)
  - Drug ineffective [Not Recovered/Not Resolved]
  - Hypoglycaemia [Not Recovered/Not Resolved]
